FAERS Safety Report 13828471 (Version 1)
Quarter: 2017Q3

REPORT INFORMATION
  Report Type: Spontaneous
  Country: US (occurrence: US)
  Receive Date: 20170802
  Receipt Date: 20170802
  Transmission Date: 20171127
  Serious: No
  Sender: FDA-Public Use
  Company Number: None

PATIENT
  Age: 21 Year
  Sex: Male

DRUGS (8)
  1. PULMOZYME [Suspect]
     Active Substance: DORNASE ALFA
     Indication: CYSTIC FIBROSIS
     Dosage: 2.5MG/2.5MG 1 BID INHALED VIA NEBULIZER
     Route: 055
     Dates: start: 20140214
  2. LEVALBUTEROL. [Concomitant]
     Active Substance: LEVALBUTEROL
  3. OXYDETEFORM [Concomitant]
  4. BETHKIS [Concomitant]
     Active Substance: TOBRAMYCIN
  5. XOPENEX [Concomitant]
     Active Substance: LEVALBUTEROL HYDROCHLORIDE
  6. ORKAMBI [Concomitant]
     Active Substance: IVACAFTOR\LUMACAFTOR
  7. ZAPEP [Concomitant]
  8. VITAMIN D3 [Concomitant]
     Active Substance: CHOLECALCIFEROL

REACTIONS (2)
  - Memory impairment [None]
  - Drug dose omission [None]

NARRATIVE: CASE EVENT DATE: 20170802
